FAERS Safety Report 8460548-X (Version None)
Quarter: 2012Q2

REPORT INFORMATION
  Report Type: 
  Country: None (occurrence: None)
  Receive Date: 20120622
  Receipt Date: 20120613
  Transmission Date: 20120825
  Serious: Yes (Hospitalization)
  Sender: FDA-Public Use
  Company Number: DE-ASTRAZENECA-2012SE39940

PATIENT
  Age: 72 Year
  Sex: Female

DRUGS (18)
  1. SEROQUEL [Suspect]
     Route: 048
  2. RAMIPRIL [Suspect]
     Route: 048
  3. MIRTAZAPINE [Suspect]
     Route: 048
     Dates: start: 20120126
  4. VOLTAREN [Concomitant]
     Route: 048
     Dates: start: 20120205, end: 20120208
  5. MOVIPREP [Concomitant]
     Dates: start: 20120208
  6. TORSEMIDE [Suspect]
     Route: 048
  7. ASPIRIN [Suspect]
     Route: 048
     Dates: end: 20120130
  8. LYRICA [Suspect]
     Route: 048
     Dates: start: 20120208
  9. ASPIRIN [Concomitant]
     Route: 048
  10. PANTOPRAZOLE [Concomitant]
     Route: 048
     Dates: start: 20120205
  11. ASPIRIN [Suspect]
     Route: 048
     Dates: start: 20120131
  12. LYRICA [Suspect]
     Route: 048
     Dates: start: 20120127, end: 20120207
  13. CLONAZEPAM [Concomitant]
     Route: 048
  14. LYRICA [Suspect]
     Route: 048
     Dates: start: 20120209
  15. REPAGLINIDE [Concomitant]
     Route: 048
  16. BISOPROLOL FUMARATE [Suspect]
     Route: 048
  17. DIPIPERON [Suspect]
     Route: 048
     Dates: start: 20120207, end: 20120208
  18. SIMVASTATIN [Concomitant]
     Route: 048

REACTIONS (8)
  - DIZZINESS [None]
  - HYPOTONIA [None]
  - INCORRECT DOSE ADMINISTERED [None]
  - TOXICITY TO VARIOUS AGENTS [None]
  - CONDITION AGGRAVATED [None]
  - FATIGUE [None]
  - ANXIETY [None]
  - DEPRESSION [None]
